FAERS Safety Report 17478855 (Version 2)
Quarter: 2020Q1

REPORT INFORMATION
  Report Type: Report from Study
  Country: CO (occurrence: CO)
  Receive Date: 20200228
  Receipt Date: 20200318
  Transmission Date: 20200409
  Serious: Yes (Other)
  Sender: FDA-Public Use
  Company Number: CO-JNJFOC-20191046659

PATIENT
  Age: 70 Year
  Sex: Male
  Weight: 79 kg

DRUGS (2)
  1. STELARA [Suspect]
     Active Substance: USTEKINUMAB
     Indication: PSORIASIS
     Dosage: WEEK 4 DOSE ON 8-JUL-2019, WEEK 12 DOSE ON 27-SEP-2019
     Route: 058
     Dates: start: 20190610
  2. METFORMIN [Concomitant]
     Active Substance: METFORMIN HYDROCHLORIDE
     Indication: DIABETES MELLITUS
     Dosage: ONE HALF AT THE MORNING AND ONE HALF IN THE AFTERNOON
     Route: 065

REACTIONS (4)
  - Influenza [Not Recovered/Not Resolved]
  - Aphonia [Not Recovered/Not Resolved]
  - Scrotal infection [Unknown]
  - Pruritus genital [Recovered/Resolved]

NARRATIVE: CASE EVENT DATE: 20190927
